FAERS Safety Report 4835405-8 (Version None)
Quarter: 2005Q4

REPORT INFORMATION
  Report Type: 
  Country: None (occurrence: None)
  Receive Date: 20051118
  Receipt Date: 20051108
  Transmission Date: 20060501
  Serious: Yes (Other)
  Sender: FDA-Public Use
  Company Number: 200514491BCC

PATIENT
  Age: 14 Year
  Sex: Female
  Weight: 63.5036 kg

DRUGS (1)
  1. MIDOL MENSTRUAL COMPLETE CAPLETS [Suspect]
     Indication: DYSMENORRHOEA
     Dosage: 3000 MG, ORAL
     Route: 048
     Dates: start: 20051108

REACTIONS (2)
  - DYSARTHRIA [None]
  - FEELING ABNORMAL [None]
